FAERS Safety Report 4551100-7 (Version None)
Quarter: 2005Q1

REPORT INFORMATION
  Report Type: 
  Country: None (occurrence: None)
  Receive Date: 20050107
  Receipt Date: 20041228
  Transmission Date: 20050727
  Serious: Yes (Other)
  Sender: FDA-Public Use
  Company Number: 2004070651

PATIENT
  Age: 77 Year
  Sex: Female
  Weight: 70.7611 kg

DRUGS (8)
  1. NITROSTAT [Suspect]
     Indication: CHEST PAIN
     Dosage: (0.4 MG , AS NECESSARY), SUBLINGUAL
     Route: 060
     Dates: start: 19850101
  2. GLYCERLY TRINITRATE (GLYCERYL TRINITRATE) [Concomitant]
  3. POTASSIUM CHLORIDE [Concomitant]
  4. CAPS (MINERALS NOS, VITAMINS NOS) [Concomitant]
  5. CALCIUM (CALCIUM) [Concomitant]
  6. DIPHENHYDRAMINE HCL [Concomitant]
  7. ASPIRIN [Concomitant]
  8. GLIBOMET (GLIBENCLAMIDE METFORMIN HYDROCHLORIDE) [Concomitant]

REACTIONS (4)
  - CARDIAC FAILURE [None]
  - DRUG INEFFECTIVE [None]
  - MEDICATION ERROR [None]
  - VISUAL DISTURBANCE [None]
